FAERS Safety Report 9153296 (Version 1)
Quarter: 2013Q1

REPORT INFORMATION
  Report Type: Spontaneous
  Country: DK (occurrence: None)
  Receive Date: 20130204
  Receipt Date: 20130204
  Transmission Date: 20140127
  Serious: Yes (Other)
  Sender: FDA-Public Use
  Company Number: 2013MA000803

PATIENT
  Age: 18 Year
  Sex: Female

DRUGS (2)
  1. TRAMADOL HYDROCHLORIDE TABLETS, 50 MG (PUREPAC) (TRAMADOL) [Suspect]
     Indication: NECK PAIN
     Route: 048
     Dates: start: 20130111, end: 20130112
  2. MICROGYNON [Concomitant]

REACTIONS (5)
  - Syncope [None]
  - Dizziness [None]
  - Sweat gland disorder [None]
  - Vomiting [None]
  - Nausea [None]
